FAERS Safety Report 25852136 (Version 1)
Quarter: 2025Q3

REPORT INFORMATION
  Report Type: Spontaneous
  Country: US (occurrence: US)
  Receive Date: 20250926
  Receipt Date: 20250926
  Transmission Date: 20251021
  Serious: No
  Sender: B. BRAUN MEDICAL INC.
  Company Number: US-B. Braun Medical Inc.-US-BBM-202503634

PATIENT
  Sex: Female

DRUGS (1)
  1. BUPIVACAINE\DEXTROSE [Suspect]
     Active Substance: BUPIVACAINE\DEXTROSE
     Indication: Anaesthesia procedure

REACTIONS (3)
  - Drug ineffective [Unknown]
  - Anaesthetic complication [Unknown]
  - Maternal exposure during pregnancy [Unknown]
